FAERS Safety Report 20789883 (Version 1)
Quarter: 2022Q2

REPORT INFORMATION
  Report Type: Spontaneous
  Country: BR (occurrence: None)
  Receive Date: 20220505
  Receipt Date: 20220505
  Transmission Date: 20220720
  Serious: No
  Sender: FDA-Public Use
  Company Number: BR-ROCHE-3088057

PATIENT
  Age: 28 Year
  Sex: Female

DRUGS (4)
  1. OCREVUS [Suspect]
     Active Substance: OCRELIZUMAB
     Indication: Multiple sclerosis
     Dosage: SECOND DOSE ON /OCT/2021 AND /APR/2022 THIRD DOSE
     Route: 065
     Dates: start: 202103
  2. FINGOLIMOD [Concomitant]
     Active Substance: FINGOLIMOD
     Dates: start: 201902
  3. METHYLPREDNISOLONE [Concomitant]
     Active Substance: METHYLPREDNISOLONE
  4. COVID-19 VACCINE [Concomitant]

REACTIONS (2)
  - Multiple injuries [Unknown]
  - COVID-19 [Unknown]

NARRATIVE: CASE EVENT DATE: 20210901
